FAERS Safety Report 10032342 (Version 2)
Quarter: 2014Q2

REPORT INFORMATION
  Report Type: Report from Study
  Country: US (occurrence: US)
  Receive Date: 20140324
  Receipt Date: 20140417
  Transmission Date: 20141212
  Serious: No
  Sender: FDA-Public Use
  Company Number: US-CELGENEUS-163-21880-14031989

PATIENT
  Age: 64 Year
  Sex: Male
  Weight: 81.72 kg

DRUGS (1)
  1. REVLIMID [Suspect]
     Indication: PLASMA CELL MYELOMA
     Dosage: 25 MILLIGRAM
     Route: 048
     Dates: start: 201305, end: 201312

REACTIONS (2)
  - Nausea [Recovered/Resolved]
  - Renal impairment [Recovered/Resolved]
